FAERS Safety Report 6369890-X (Version None)
Quarter: 2009Q3

REPORT INFORMATION
  Report Type: 
  Country: None (occurrence: None)
  Receive Date: 20090923
  Receipt Date: 20070618
  Transmission Date: 20100115
  Serious: Yes (Other)
  Sender: FDA-Public Use
  Company Number: US-ASTRAZENECA-2006UW10985

PATIENT
  Age: 15634 Day
  Sex: Female
  Weight: 76.2 kg

DRUGS (23)
  1. SEROQUEL [Suspect]
     Indication: DEPRESSION
     Dosage: 25 TO 150 MG
     Route: 048
     Dates: start: 20040402
  2. ZYPREXA [Suspect]
  3. RISPERDAL [Concomitant]
  4. PAXIL [Concomitant]
     Dates: end: 20041112
  5. LAMICTAL [Concomitant]
     Dates: start: 20040930, end: 20041021
  6. WELLBUTRIN SR [Concomitant]
  7. ALBUTEROL [Concomitant]
  8. FLUTICASONE [Concomitant]
  9. GLIPIZIDE [Concomitant]
  10. CEPHALEXIN [Concomitant]
  11. LOVASTATIN [Concomitant]
  12. BIAXIN [Concomitant]
  13. ACETAMINOPHEN [Concomitant]
  14. CIPROFLAXACIN [Concomitant]
  15. ETODOLAC [Concomitant]
  16. METHOCARBAMOL [Concomitant]
  17. IBUPROFEN [Concomitant]
  18. SUCLOR [Concomitant]
  19. LORAZEPAM [Concomitant]
  20. PHENERGAN [Concomitant]
  21. MORPHINE [Concomitant]
  22. ERYTHROMYCIN [Concomitant]
  23. CYCLOBENZAPRINE [Concomitant]

REACTIONS (17)
  - ABNORMAL DREAMS [None]
  - BACK INJURY [None]
  - CHEST INJURY [None]
  - CHEST PAIN [None]
  - CONTUSION [None]
  - DIABETES MELLITUS [None]
  - DIABETIC KETOACIDOSIS [None]
  - DISTURBANCE IN ATTENTION [None]
  - EMOTIONAL DISTRESS [None]
  - GLUCOSE TOLERANCE IMPAIRED [None]
  - HYPOMANIA [None]
  - NECK INJURY [None]
  - NECK PAIN [None]
  - PAIN [None]
  - PAIN IN EXTREMITY [None]
  - SOMNOLENCE [None]
  - WEIGHT INCREASED [None]
